FAERS Safety Report 5786764-3 (Version None)
Quarter: 2008Q2

REPORT INFORMATION
  Report Type: 
  Country: None (occurrence: None)
  Receive Date: 20080620
  Receipt Date: 20080610
  Transmission Date: 20081010
  Serious: Yes (Death, Hospitalization)
  Sender: FDA-Public Use
  Company Number: 2008AL006699

PATIENT
  Age: 68 Year
  Sex: Male
  Weight: 93 kg

DRUGS (3)
  1. GLYBURIDE [Suspect]
     Dosage: PO
     Route: 048
     Dates: start: 20070101, end: 20071224
  2. SUNITINIB MALATE [Concomitant]
  3. ACETAMINOPHEN [Concomitant]

REACTIONS (4)
  - COMA [None]
  - DISEASE PROGRESSION [None]
  - GENERAL PHYSICAL HEALTH DETERIORATION [None]
  - HYPOGLYCAEMIA [None]
